FAERS Safety Report 5689744-1 (Version None)
Quarter: 2008Q1

REPORT INFORMATION
  Report Type: 
  Country: None (occurrence: None)
  Receive Date: 20080328
  Receipt Date: 20080314
  Transmission Date: 20080703
  Serious: Yes (Death)
  Sender: FDA-Public Use
  Company Number: 13257

PATIENT
  Age: 34 Year
  Sex: Male

DRUGS (10)
  1. OXYCODONE HCL [Suspect]
     Indication: PAIN
     Dosage: 5-10MG BID PRN ORAL
     Route: 048
     Dates: end: 20080101
  2. OPANA ER [Suspect]
     Indication: PAIN
     Dosage: 20MG BID ORAL
     Route: 048
     Dates: start: 20071101, end: 20080101
  3. CLONAZEPAM [Suspect]
     Indication: ANXIETY
     Dosage: 1MG TID ORAL
     Route: 048
     Dates: end: 20080101
  4. MICARDIS [Suspect]
     Indication: HYPERTENSION
     Dosage: 80MG QD ORAL
     Route: 048
     Dates: end: 20080101
  5. BACLOFEN [Suspect]
     Indication: DRUG USE FOR UNKNOWN INDICATION
     Dosage: 40MG BID ORAL
     Route: 048
     Dates: end: 20080101
  6. CYCLOBENZAPRINE HCL [Suspect]
     Indication: DRUG USE FOR UNKNOWN INDICATION
     Dosage: 10MG TID ORAL
     Route: 048
     Dates: end: 20080101
  7. ROZEREM [Suspect]
     Indication: INSOMNIA
     Dosage: DOSE/FREQ
     Dates: end: 20080101
  8. AMITRIPTYLINE HCL [Suspect]
     Indication: ANXIETY
     Dosage: 100MG QHS ORAL
     Route: 048
     Dates: end: 20080101
  9. AMITRIPTYLINE HCL [Suspect]
     Indication: DEPRESSION
     Dosage: 100MG QHS ORAL
     Route: 048
     Dates: end: 20080101
  10. WELLBUTRIN XL [Suspect]
     Dosage: 300MG QD ORAL
     Route: 048
     Dates: end: 20080101

REACTIONS (3)
  - ACCIDENTAL DEATH [None]
  - DRUG TOXICITY [None]
  - LOSS OF CONSCIOUSNESS [None]
